FAERS Safety Report 17961396 (Version 1)
Quarter: 2020Q2

REPORT INFORMATION
  Report Type: Spontaneous
  Country: US (occurrence: US)
  Receive Date: 20200629
  Receipt Date: 20200629
  Transmission Date: 20200714
  Serious: No
  Sender: FDA-Public Use
  Company Number: US-ROCHE-2536859

PATIENT
  Age: 67 Year
  Sex: Male

DRUGS (2)
  1. XELODA [Suspect]
     Active Substance: CAPECITABINE
     Indication: PRODUCT USED FOR UNKNOWN INDICATION
     Route: 048
     Dates: start: 202001
  2. XELODA [Suspect]
     Active Substance: CAPECITABINE
     Dosage: ORIGINAL DOSAGE WAS 3 PILLS TWICE DAILY, THEN IT WAS REDUCED TO 1 PILL TWICE DAILY
     Route: 048

REACTIONS (2)
  - Chest pain [Recovered/Resolved]
  - Nausea [Unknown]

NARRATIVE: CASE EVENT DATE: 20200113
